FAERS Safety Report 12397887 (Version 1)
Quarter: 2016Q2

REPORT INFORMATION
  Report Type: Spontaneous
  Country: US (occurrence: None)
  Receive Date: 20160523
  Receipt Date: 20160523
  Transmission Date: 20160815
  Serious: Yes (Hospitalization)
  Sender: FDA-Public Use
  Company Number: None

PATIENT
  Age: 34 Year
  Sex: Male
  Weight: 62.4 kg

DRUGS (1)
  1. HYPERHEP B S/D [Suspect]
     Active Substance: HUMAN HEPATITIS B VIRUS IMMUNE GLOBULIN
     Indication: EXPOSURE TO COMMUNICABLE DISEASE
     Route: 030
     Dates: start: 20160517, end: 20160517

REACTIONS (4)
  - Chills [None]
  - Pyrexia [None]
  - Bacterial infection [None]
  - Product contamination microbial [None]

NARRATIVE: CASE EVENT DATE: 20160517
